FAERS Safety Report 7733562-7 (Version None)
Quarter: 2011Q3

REPORT INFORMATION
  Report Type: 
  Country: None (occurrence: None)
  Receive Date: 20110907
  Receipt Date: 20110824
  Transmission Date: 20111222
  Serious: Yes (Hospitalization)
  Sender: FDA-Public Use
  Company Number: CH-ELI_LILLY_AND_COMPANY-CH201108008598

PATIENT
  Age: 48 Year
  Sex: Female

DRUGS (7)
  1. SURMONTIL [Concomitant]
     Route: 065
  2. PANTOPRAZOLE [Concomitant]
     Dosage: 40 MG, QD
     Route: 048
  3. CITALOPRAM [Concomitant]
     Dosage: 120 MG, UNK
  4. ZYPREXA [Suspect]
     Indication: PERSONALITY DISORDER
     Dosage: 10 MG, QD
     Route: 048
  5. ABILIFY [Concomitant]
     Indication: PERSONALITY DISORDER
     Dosage: 15 MG, QD
     Route: 048
  6. SURMONTIL [Concomitant]
     Indication: PERSONALITY DISORDER
     Dosage: 200 MG, QD
     Route: 048
  7. CITALOPRAM [Concomitant]
     Indication: PERSONALITY DISORDER
     Dosage: 160 MG, QD
     Route: 048
     Dates: end: 20110108

REACTIONS (3)
  - ELECTROCARDIOGRAM QT PROLONGED [None]
  - OFF LABEL USE [None]
  - DRUG INTERACTION [None]
